FAERS Safety Report 11432201 (Version 2)
Quarter: 2015Q3

REPORT INFORMATION
  Report Type: Report from Study
  Country: RU (occurrence: RU)
  Receive Date: 20150828
  Receipt Date: 20150916
  Transmission Date: 20151125
  Serious: Yes (Hospitalization)
  Sender: FDA-Public Use
  Company Number: RU-GLAXOSMITHKLINE-RU2015121486

PATIENT
  Age: 15 Year
  Sex: Female
  Weight: 78 kg

DRUGS (5)
  1. VITAMIN B1 [Suspect]
     Active Substance: THIAMINE HYDROCHLORIDE
     Indication: ASTHENIA
     Route: 030
     Dates: start: 20150824
  2. BELIMUMAB [Suspect]
     Active Substance: BELIMUMAB
     Indication: SYSTEMIC LUPUS ERYTHEMATOSUS
     Dosage: 10 MG/KG, CYC
     Route: 042
     Dates: start: 20150302
  3. THIORIDAZINE [Suspect]
     Active Substance: THIORIDAZINE
     Indication: ASTHENIA
     Dosage: 10 MG, BID
     Route: 048
     Dates: start: 20150824
  4. GLYCINE. [Suspect]
     Active Substance: GLYCINE
     Indication: ASTHENIA
     Dosage: 1 DF, TID
     Route: 048
     Dates: start: 20150824
  5. PYRIDOXINE HYDROCHLORIDE. [Suspect]
     Active Substance: PYRIDOXINE HYDROCHLORIDE
     Indication: ASTHENIA
     Dosage: 1 ML, 1D
     Route: 030
     Dates: start: 20150824

REACTIONS (1)
  - Asthenia [Recovering/Resolving]

NARRATIVE: CASE EVENT DATE: 20150822
